FAERS Safety Report 8102918 (Version 11)
Quarter: 2014Q2

REPORT INFORMATION
  Report Type: Spontaneous
  Country: US (occurrence: US)
  Receive Date: 20110823
  Receipt Date: 20140529
  Transmission Date: 20141212
  Serious: Yes (Hospitalization, Disabling, Other)
  Sender: FDA-Public Use
  Company Number: US-009507513-1108USA02812

PATIENT
  Sex: Female
  Weight: 62.6 kg

DRUGS (12)
  1. FOSAMAX [Suspect]
     Indication: OSTEOPOROSIS
     Dosage: 40 MG, QW
     Route: 048
     Dates: start: 200008, end: 200102
  2. FOSAMAX [Suspect]
     Indication: OSTEOPENIA
     Dosage: 70 MG, QW
     Route: 048
     Dates: start: 200102
  3. CALCIUM (UNSPECIFIED) [Concomitant]
     Dosage: 1000 MG, QD
     Dates: start: 2000
  4. CHOLECALCIFEROL [Concomitant]
     Dosage: 50000 IU, QD
     Dates: start: 2006
  5. POTASSIUM (UNSPECIFIED) [Concomitant]
     Dosage: 20 MG, QD
     Dates: start: 1997
  6. THYROLAR [Concomitant]
     Dosage: 3 DF, QD
     Dates: start: 1970
  7. FOSAMAX [Suspect]
     Indication: OSTEOPENIA
     Dosage: 70 MG, QW
     Route: 048
     Dates: start: 200804, end: 201003
  8. ESTRACE [Concomitant]
     Dosage: 1 MG, UNK
     Dates: start: 1995, end: 2011
  9. PROVERA [Concomitant]
     Dosage: 2.5 MG, QD
     Dates: start: 1995, end: 2011
  10. MAXZIDE [Concomitant]
     Dates: start: 1970
  11. PROMETRIUM [Concomitant]
     Dosage: 100 MG, QD
     Route: 048
  12. PREDNISONE [Concomitant]
     Indication: HYPERSENSITIVITY
     Dosage: UNK
     Dates: start: 2000

REACTIONS (54)
  - Femur fracture [Not Recovered/Not Resolved]
  - Open reduction of fracture [Unknown]
  - Low turnover osteopathy [Not Recovered/Not Resolved]
  - Uterovaginal prolapse [Unknown]
  - Urinary tract infection [Not Recovered/Not Resolved]
  - Anaemia postoperative [Unknown]
  - Fall [Unknown]
  - Hyperglycaemia [Unknown]
  - Hypotension [Unknown]
  - Hypokalaemia [Unknown]
  - Tachycardia [Unknown]
  - Urosepsis [Unknown]
  - Endometrial disorder [Unknown]
  - Hypoalbuminaemia [Unknown]
  - Escherichia urinary tract infection [Unknown]
  - Asthenia [Unknown]
  - Hypocalcaemia [Unknown]
  - Tooth disorder [Unknown]
  - Gingival disorder [Unknown]
  - Hypertonic bladder [Unknown]
  - Blood potassium decreased [Unknown]
  - Asthma [Unknown]
  - Contusion [Recovering/Resolving]
  - Pulmonary fibrosis [Not Recovered/Not Resolved]
  - Bronchiectasis [Not Recovered/Not Resolved]
  - Irritable bowel syndrome [Unknown]
  - Macular degeneration [Unknown]
  - Large intestine polyp [Unknown]
  - Colon adenoma [Unknown]
  - Melanosis coli [Unknown]
  - Interstitial lung disease [Unknown]
  - Renal cyst [Unknown]
  - Pulmonary mass [Unknown]
  - Onychomycosis [Unknown]
  - Tooth disorder [Unknown]
  - Bone loss [Unknown]
  - Osteoarthritis [Unknown]
  - Sciatica [Unknown]
  - Radiculopathy [Recovering/Resolving]
  - Rotator cuff syndrome [Unknown]
  - Epicondylitis [Unknown]
  - Endometrial disorder [Unknown]
  - Postmenopausal haemorrhage [Unknown]
  - Eye disorder [Unknown]
  - Osteitis [Unknown]
  - Subcutaneous emphysema [Unknown]
  - Synovial cyst [Unknown]
  - Medical device complication [Unknown]
  - Pulmonary fibrosis [Unknown]
  - Drug ineffective [Unknown]
  - Oesophageal discomfort [Unknown]
  - Drug hypersensitivity [Unknown]
  - Gastrooesophageal reflux disease [Unknown]
  - Back pain [Recovering/Resolving]
